FAERS Safety Report 10039387 (Version 1)
Quarter: 2014Q1

REPORT INFORMATION
  Report Type: Spontaneous
  Country: AU (occurrence: AU)
  Receive Date: 20140326
  Receipt Date: 20140326
  Transmission Date: 20141002
  Serious: Yes (Hospitalization)
  Sender: FDA-Public Use
  Company Number: PHHY2014AU034348

PATIENT
  Age: 21 Year
  Sex: Female

DRUGS (5)
  1. GILENYA [Suspect]
     Route: 048
     Dates: start: 201112
  2. ESTELLE                            /00022701/ [Concomitant]
     Dates: start: 201201
  3. SERTRALINE [Concomitant]
     Dates: start: 20131031
  4. PARACETAMOL [Concomitant]
     Dosage: 1 G, UNK
  5. IBUPROFEN [Concomitant]
     Dosage: 1 DF, BID (400 MG)

REACTIONS (7)
  - Hepatitis acute [Unknown]
  - Decreased appetite [Unknown]
  - Yellow skin [Unknown]
  - Nausea [Unknown]
  - Abdominal pain upper [Unknown]
  - Fatigue [Unknown]
  - Liver function test abnormal [Recovering/Resolving]
